FAERS Safety Report 9792733 (Version 1)
Quarter: 2014Q1

REPORT INFORMATION
  Report Type: Spontaneous
  Country: US (occurrence: US)
  Receive Date: 20140102
  Receipt Date: 20140102
  Transmission Date: 20141002
  Serious: No
  Sender: FDA-Public Use
  Company Number: US-009507513-1312USA012633

PATIENT
  Sex: 0

DRUGS (1)
  1. NEXPLANON [Suspect]
     Route: 059

REACTIONS (1)
  - Vaginal haemorrhage [Unknown]
